FAERS Safety Report 7938280-8 (Version None)
Quarter: 2011Q4

REPORT INFORMATION
  Report Type: 
  Country: None (occurrence: None)
  Receive Date: 20111123
  Receipt Date: 20111118
  Transmission Date: 20120403
  Serious: Yes (Other)
  Sender: FDA-Public Use
  Company Number: US-PFIZER INC-2010130172

PATIENT
  Sex: Male
  Weight: 83.9 kg

DRUGS (2)
  1. ANDROGEL [Concomitant]
     Dosage: UNK
  2. VIAGRA [Suspect]
     Indication: ERECTILE DYSFUNCTION
     Dosage: 100 MG, AS NEEDED
     Route: 048
     Dates: start: 19960101

REACTIONS (7)
  - CEREBROVASCULAR ACCIDENT [None]
  - TINNITUS [None]
  - MUSCULOSKELETAL DISORDER [None]
  - ARTERIAL DISORDER [None]
  - SURGERY [None]
  - EYE DISORDER [None]
  - THROMBOSIS [None]
